FAERS Safety Report 9718599 (Version 1)
Quarter: 2013Q4

REPORT INFORMATION
  Report Type: Spontaneous
  Country: US (occurrence: US)
  Receive Date: 20131125
  Receipt Date: 20131125
  Transmission Date: 20140711
  Serious: No
  Sender: FDA-Public Use
  Company Number: US-VIVUS-2012V1000306

PATIENT
  Age: 31 Year
  Sex: Female
  Weight: 96.7 kg

DRUGS (5)
  1. QSYMIA 3.75MG/23MG [Suspect]
     Indication: WEIGHT DECREASED
     Route: 048
     Dates: start: 201212, end: 20121214
  2. METFORMIN [Concomitant]
     Indication: POLYCYSTIC OVARIES
     Dates: start: 201212
  3. OMEGA-3 [Concomitant]
     Indication: BLOOD GLUCOSE ABNORMAL
     Dates: start: 201212
  4. SPIRONOLACTONE [Concomitant]
     Indication: POLYCYSTIC OVARIES
     Dates: start: 201212, end: 20121219
  5. WALMART GENERIC WOMEN^S MULTIVITAMIN [Concomitant]
     Indication: VITAMIN SUPPLEMENTATION

REACTIONS (6)
  - Pregnancy [Not Recovered/Not Resolved]
  - Mood swings [Recovered/Resolved]
  - Anxiety [Recovered/Resolved]
  - Panic attack [Recovered/Resolved]
  - Emotional distress [Recovered/Resolved]
  - Crying [Recovered/Resolved]
